FAERS Safety Report 5484598-0 (Version None)
Quarter: 2007Q4

REPORT INFORMATION
  Report Type: 
  Country: None (occurrence: None)
  Receive Date: 20071012
  Receipt Date: 20071003
  Transmission Date: 20080405
  Serious: Yes (Other)
  Sender: FDA-Public Use
  Company Number: GB-PFIZER INC-2007083476

PATIENT
  Age: 71 Year
  Sex: Male
  Weight: 65 kg

DRUGS (4)
  1. ATORVASTATIN CALCIUM [Suspect]
     Indication: DIABETES MELLITUS
     Route: 048
     Dates: start: 20040301, end: 20070601
  2. ATENOLOL [Concomitant]
     Route: 048
  3. SULINDAC [Concomitant]
     Route: 048
  4. ROSIGLITAZONE [Concomitant]
     Route: 048

REACTIONS (3)
  - ARTHRALGIA [None]
  - DRY SKIN [None]
  - TREMOR [None]
